FAERS Safety Report 12589109 (Version 1)
Quarter: 2016Q3

REPORT INFORMATION
  Report Type: Spontaneous
  Country: AU (occurrence: AU)
  Receive Date: 20160725
  Receipt Date: 20160725
  Transmission Date: 20161109
  Serious: Yes (Other)
  Sender: FDA-Public Use
  Company Number: PHHY2016AU097216

PATIENT
  Sex: Female

DRUGS (50)
  1. METHOTREXATE. [Suspect]
     Active Substance: METHOTREXATE
     Indication: PRODUCT USED FOR UNKNOWN INDICATION
     Dosage: 15 MG, UNK
     Route: 037
     Dates: start: 20151124, end: 20151124
  2. VINCRISTINE [Concomitant]
     Active Substance: VINCRISTINE
     Dosage: 2 MG, UNK
     Route: 042
     Dates: start: 20151124, end: 20151124
  3. VINCRISTINE [Concomitant]
     Active Substance: VINCRISTINE
     Dosage: 2 MG, UNK
     Route: 042
     Dates: start: 20160112, end: 20160112
  4. VINCRISTINE [Concomitant]
     Active Substance: VINCRISTINE
     Dosage: 2 MG, UNK
     Route: 042
     Dates: start: 20160225, end: 20160225
  5. VINCRISTINE [Concomitant]
     Active Substance: VINCRISTINE
     Dosage: 2 MG, UNK
     Route: 042
     Dates: start: 20160329, end: 20160329
  6. MERCAPTOPURINE. [Concomitant]
     Active Substance: MERCAPTOPURINE
     Dosage: 5.5 OT, WEEKLY
     Route: 048
     Dates: start: 20160407
  7. PEG/L-ASPARAGINASE [Concomitant]
     Active Substance: PEGASPARGASE
     Dosage: 3425 IU, UNK
     Route: 042
     Dates: start: 20160106, end: 20160106
  8. CYCLOPHOSPHAMIDE. [Concomitant]
     Active Substance: CYCLOPHOSPHAMIDE
     Indication: PRODUCT USED FOR UNKNOWN INDICATION
     Dosage: 1370 MG, UNK
     Route: 042
     Dates: start: 20151223, end: 20151223
  9. METHOTREXATE. [Suspect]
     Active Substance: METHOTREXATE
     Dosage: 15 MG, UNK
     Route: 037
     Dates: start: 20151223, end: 20151223
  10. METHOTREXATE. [Suspect]
     Active Substance: METHOTREXATE
     Dosage: 15 MG, UNK
     Route: 037
     Dates: start: 20160407, end: 20160407
  11. VINCRISTINE [Concomitant]
     Active Substance: VINCRISTINE
     Dosage: 2 MG, UNK
     Route: 042
     Dates: start: 20160218, end: 20160218
  12. VINCRISTINE [Concomitant]
     Active Substance: VINCRISTINE
     Dosage: 2 MG, UNK
     Route: 042
     Dates: start: 20160322, end: 20160322
  13. VINCRISTINE [Concomitant]
     Active Substance: VINCRISTINE
     Dosage: 2 MG, UNK
     Route: 042
     Dates: start: 20160421, end: 20160421
  14. PEG/L-ASPARAGINASE [Concomitant]
     Active Substance: PEGASPARGASE
     Dosage: 3575 IU, UNK
     Route: 042
     Dates: start: 20160218, end: 20160218
  15. CYTARABINE. [Concomitant]
     Active Substance: CYTARABINE
     Dosage: 103 MG, QD X 4/7
     Route: 058
     Dates: start: 20151223, end: 20151226
  16. METHOTREXATE. [Suspect]
     Active Substance: METHOTREXATE
     Dosage: 15 MG, UNK
     Route: 037
     Dates: start: 20151231, end: 20151231
  17. METHOTREXATE. [Suspect]
     Active Substance: METHOTREXATE
     Dosage: 15 MG, UNK
     Route: 037
     Dates: start: 20160106, end: 20160106
  18. METHOTREXATE. [Suspect]
     Active Substance: METHOTREXATE
     Dosage: 7.7 G, UNK
     Route: 042
     Dates: start: 20160421, end: 20160422
  19. VINCRISTINE [Concomitant]
     Active Substance: VINCRISTINE
     Dosage: 2 MG, UNK
     Route: 042
     Dates: start: 20151201, end: 20151201
  20. VINCRISTINE [Concomitant]
     Active Substance: VINCRISTINE
     Dosage: 2 MG, UNK
     Route: 042
     Dates: start: 20160106, end: 20160106
  21. DEXA//DEXAMETHASONE [Concomitant]
     Indication: PRODUCT USED FOR UNKNOWN INDICATION
     Dosage: 16 MG, BID X (2/7)
     Route: 048
     Dates: start: 20160307, end: 20160308
  22. METHOTREXATE. [Suspect]
     Active Substance: METHOTREXATE
     Dosage: 15 MG, UNK
     Route: 037
     Dates: start: 20160329, end: 20160329
  23. VINCRISTINE [Concomitant]
     Active Substance: VINCRISTINE
     Dosage: 2 MG, UNK
     Route: 042
     Dates: start: 20151208, end: 20151208
  24. MERCAPTOPURINE. [Concomitant]
     Active Substance: MERCAPTOPURINE
     Dosage: 12 OT, WEEKLY X 14/7
     Route: 048
     Dates: start: 20160204, end: 20160217
  25. DEXA//DEXAMETHASONE [Concomitant]
     Dosage: 16 MG, BID X (2/7)
     Route: 048
     Dates: start: 20160322, end: 20160323
  26. DAUNORUBICIN [Concomitant]
     Active Substance: DAUNORUBICIN
     Dosage: 36 MG, UNK
     Route: 042
     Dates: start: 20151208, end: 20151208
  27. RUXOLITINIB [Suspect]
     Active Substance: RUXOLITINIB
     Dosage: 45 MG, BID
     Route: 048
     Dates: start: 20160407, end: 20160505
  28. METHOTREXATE. [Suspect]
     Active Substance: METHOTREXATE
     Dosage: 15 MG, UNK
     Route: 037
     Dates: start: 20160112, end: 20160112
  29. METHOTREXATE. [Suspect]
     Active Substance: METHOTREXATE
     Dosage: 15 MG, UNK
     Route: 037
     Dates: start: 20160315, end: 20160315
  30. METHOTREXATE. [Suspect]
     Active Substance: METHOTREXATE
     Dosage: 7.7 G, UNK
     Route: 042
     Dates: start: 20160407, end: 20160408
  31. VINCRISTINE [Concomitant]
     Active Substance: VINCRISTINE
     Dosage: 2 MG, UNK
     Route: 042
     Dates: start: 20160315, end: 20160315
  32. VINCRISTINE [Concomitant]
     Active Substance: VINCRISTINE
     Dosage: 2 MG, UNK
     Route: 042
     Dates: start: 20160407, end: 20160407
  33. MERCAPTOPURINE. [Concomitant]
     Active Substance: MERCAPTOPURINE
     Indication: PRODUCT USED FOR UNKNOWN INDICATION
     Dosage: 11.5 OT, WEEKLY X 14/7
     Route: 048
     Dates: start: 20151223, end: 20160105
  34. DEXA//DEXAMETHASONE [Concomitant]
     Dosage: 16 MG, BID X (2/7)
     Route: 048
     Dates: start: 20160315, end: 20160317
  35. CYTARABINE. [Concomitant]
     Active Substance: CYTARABINE
     Dosage: 103 MG, QD X 4/7
     Route: 058
     Dates: start: 20151231, end: 20160103
  36. CYTARABINE. [Concomitant]
     Active Substance: CYTARABINE
     Dosage: 110 MG, QD X 4/7
     Route: 058
     Dates: start: 20160211, end: 20160214
  37. CYCLOPHOSPHAMIDE. [Concomitant]
     Active Substance: CYCLOPHOSPHAMIDE
     Dosage: 1430 MG, UNK
     Route: 042
     Dates: start: 20160204, end: 20160204
  38. DAUNORUBICIN [Concomitant]
     Active Substance: DAUNORUBICIN
     Indication: PRODUCT USED FOR UNKNOWN INDICATION
     Dosage: 36 MG, UNK
     Route: 042
     Dates: start: 20151117, end: 20151117
  39. METHOTREXATE. [Suspect]
     Active Substance: METHOTREXATE
     Dosage: 15 MG, UNK
     Dates: start: 20160321, end: 20160321
  40. VINCRISTINE [Concomitant]
     Active Substance: VINCRISTINE
     Dosage: 2 MG, UNK
     Route: 042
     Dates: start: 20160307, end: 20160307
  41. FOLINIC ACID [Concomitant]
     Active Substance: LEUCOVORIN
     Indication: PRODUCT USED FOR UNKNOWN INDICATION
     Dosage: 23 MG, Q6H
     Route: 042
     Dates: start: 20160409, end: 20160410
  42. DEXA//DEXAMETHASONE [Concomitant]
     Dosage: 15 MG, BID X (2/7)
     Route: 048
     Dates: start: 20160329, end: 20160331
  43. CYTARABINE. [Concomitant]
     Active Substance: CYTARABINE
     Dosage: 110 MG, QD X 4/7
     Route: 058
     Dates: start: 20160204, end: 20160207
  44. DAUNORUBICIN [Concomitant]
     Active Substance: DAUNORUBICIN
     Dosage: 36 MG, UNK
     Route: 042
     Dates: start: 20151201, end: 20151201
  45. RUXOLITINIB [Suspect]
     Active Substance: RUXOLITINIB
     Indication: PRODUCT USED FOR UNKNOWN INDICATION
     Dosage: 20 MG, BID
     Route: 048
     Dates: start: 20160311, end: 20160407
  46. PREDNISOLONE. [Suspect]
     Active Substance: PREDNISOLONE
     Indication: PRODUCT USED FOR UNKNOWN INDICATION
     Dosage: 42 MG, BID
     Route: 048
     Dates: start: 20151117, end: 20151215
  47. VINCRISTINE [Concomitant]
     Active Substance: VINCRISTINE
     Indication: PRODUCT USED FOR UNKNOWN INDICATION
     Dosage: 2 MG, UNK
     Route: 042
     Dates: start: 20151117, end: 20151117
  48. PEG/L-ASPARAGINASE [Concomitant]
     Active Substance: PEGASPARGASE
     Indication: PRODUCT USED FOR UNKNOWN INDICATION
     Dosage: 3550 IU, UNK
     Route: 042
     Dates: start: 20151120, end: 20151120
  49. CYTARABINE. [Concomitant]
     Active Substance: CYTARABINE
     Indication: PRODUCT USED FOR UNKNOWN INDICATION
     Dosage: 70 MG, UNK
     Route: 037
     Dates: start: 20151116, end: 20151116
  50. DAUNORUBICIN [Concomitant]
     Active Substance: DAUNORUBICIN
     Dosage: 36 MG, UNK
     Route: 042
     Dates: start: 20151124, end: 20151124

REACTIONS (2)
  - Acute lymphocytic leukaemia [Unknown]
  - Drug effect incomplete [Unknown]
